FAERS Safety Report 20725724 (Version 1)
Quarter: 2022Q2

REPORT INFORMATION
  Report Type: Spontaneous
  Country: US (occurrence: US)
  Receive Date: 20220419
  Receipt Date: 20220419
  Transmission Date: 20220720
  Serious: Yes (Death, Hospitalization, Other)
  Sender: FDA-Public Use
  Company Number: US-BIOVITRUM-2022US05327

PATIENT
  Age: 79 Year
  Sex: Male

DRUGS (1)
  1. DOPTELET [Suspect]
     Active Substance: AVATROMBOPAG MALEATE
     Indication: Neoplasm malignant
     Route: 048
     Dates: start: 20220325

REACTIONS (6)
  - Death [Fatal]
  - Pneumonia [Unknown]
  - Pulmonary oedema [Unknown]
  - Dyspnoea [Unknown]
  - Asthenia [Unknown]
  - Off label use [Unknown]

NARRATIVE: CASE EVENT DATE: 20220325
